FAERS Safety Report 9507769 (Version 1)
Quarter: 2013Q3

REPORT INFORMATION
  Report Type: Spontaneous
  Country: GB (occurrence: GB)
  Receive Date: 20130909
  Receipt Date: 20130909
  Transmission Date: 20140515
  Serious: Yes (Hospitalization)
  Sender: FDA-Public Use
  Company Number: PHHY2013GB096075

PATIENT
  Age: 78 Year
  Sex: Male

DRUGS (8)
  1. CLOPIDOGREL [Suspect]
     Indication: CORONARY ARTERY BYPASS
     Dosage: 75 MG, QD
     Route: 048
     Dates: start: 201301
  2. ACETYLSALICYLIC ACID [Suspect]
     Indication: CORONARY ARTERY BYPASS
     Dosage: 75 MG, QD
     Route: 048
     Dates: start: 201301
  3. NAPROXEN [Suspect]
     Indication: SCIATICA
     Dosage: 500 MG, BID
     Route: 048
     Dates: start: 20130731
  4. BISOPROLOL [Concomitant]
  5. INDAPAMIDE [Concomitant]
  6. RAMIPRIL [Concomitant]
  7. AMITRIPTYLINE [Concomitant]
  8. RANITIDINE [Concomitant]

REACTIONS (1)
  - Rectal haemorrhage [Recovering/Resolving]
